FAERS Safety Report 8908364 (Version 1)
Quarter: 2012Q4

REPORT INFORMATION
  Report Type: 
  Country: US (occurrence: US)
  Receive Date: 20121114
  Receipt Date: 20121114
  Transmission Date: 20130627
  Serious: No
  Sender: FDA-Public Use
  Company Number: US-PFIZER INC-2012280597

PATIENT
  Age: 58 Year
  Sex: Male
  Weight: 88.44 kg

DRUGS (5)
  1. VIAGRA [Suspect]
     Indication: ERECTILE DYSFUNCTION
     Dosage: 100 mg, UNK
     Route: 048
  2. DOXAZOSIN [Concomitant]
     Dosage: UNK
  3. FINASTERIDE [Concomitant]
     Dosage: UNK
  4. XANAX [Concomitant]
     Dosage: 1 mg, 1x/day
  5. INDERAL [Concomitant]
     Dosage: UNK

REACTIONS (1)
  - Therapeutic response unexpected [Unknown]
